FAERS Safety Report 11701219 (Version 2)
Quarter: 2016Q2

REPORT INFORMATION
  Report Type: Spontaneous
  Country: CZ (occurrence: CZ)
  Receive Date: 20151105
  Receipt Date: 20160624
  Transmission Date: 20160815
  Serious: Yes (Hospitalization)
  Sender: FDA-Public Use
  Company Number: CZ-PFIZER INC-2015377780

PATIENT
  Age: 52 Year
  Sex: Female

DRUGS (19)
  1. RAMIPRIL. [Suspect]
     Active Substance: RAMIPRIL
     Dosage: UNK
  2. GUAIFENESIN. [Suspect]
     Active Substance: GUAIFENESIN
     Dosage: UNK
  3. OXAZEPAM. [Suspect]
     Active Substance: OXAZEPAM
     Dosage: UNK
  4. CODEINE PHOSPHATE/PARACETAMOL [Suspect]
     Active Substance: ACETAMINOPHEN\CODEINE PHOSPHATE
     Dosage: UNK
  5. FELODIPINE. [Suspect]
     Active Substance: FELODIPINE
     Dosage: UNK
  6. HALOPERIDOL. [Suspect]
     Active Substance: HALOPERIDOL
     Dosage: UNK
  7. OMEPRAZOLE. [Suspect]
     Active Substance: OMEPRAZOLE
     Dosage: UNK
  8. URAPIDIL [Suspect]
     Active Substance: URAPIDIL
     Dosage: UNK
  9. DICLOFENAC SODIUM. [Suspect]
     Active Substance: DICLOFENAC SODIUM
     Dosage: UNK
  10. FLUVOXAMINE [Suspect]
     Active Substance: FLUVOXAMINE
     Dosage: UNK
  11. SAFAPRYN [Suspect]
     Active Substance: ACETAMINOPHEN\ASPIRIN
     Dosage: UNK
  12. METAMIZOLE SODIUM/PITOFENONE HYDROCHLORIDE [Suspect]
     Active Substance: METAMIZOLE SODIUM\PITOFENONE HYDROCHLORIDE
     Dosage: UNK
  13. LITHIUM CARBONATE. [Suspect]
     Active Substance: LITHIUM CARBONATE
     Dosage: UNK
  14. CLONAZEPAM. [Suspect]
     Active Substance: CLONAZEPAM
     Dosage: UNK
  15. IBUPROFEN. [Suspect]
     Active Substance: IBUPROFEN
     Dosage: UNK
  16. QUETIAPINE. [Suspect]
     Active Substance: QUETIAPINE
     Dosage: UNK
  17. SUMATRIPTAN SUCCINATE. [Suspect]
     Active Substance: SUMATRIPTAN SUCCINATE
     Dosage: UNK
  18. CLOMIPRAMINE HYDROCHLORIDE. [Suspect]
     Active Substance: CLOMIPRAMINE HYDROCHLORIDE
     Dosage: UNK
  19. GLYCERIN. [Suspect]
     Active Substance: GLYCERIN
     Dosage: UNK
     Route: 054

REACTIONS (5)
  - Thirst [Recovered/Resolved]
  - Acute kidney injury [Recovered/Resolved]
  - Drug level increased [Recovered/Resolved]
  - Toxicity to various agents [Recovered/Resolved]
  - Altered state of consciousness [Recovered/Resolved]
